FAERS Safety Report 9264284 (Version 1)
Quarter: 2013Q2

REPORT INFORMATION
  Report Type: Spontaneous
  Country: SE (occurrence: SE)
  Receive Date: 20130430
  Receipt Date: 20130430
  Transmission Date: 20140414
  Serious: Yes (Other)
  Sender: FDA-Public Use
  Company Number: SE-PFIZER INC-2013101428

PATIENT
  Age: 69 Year
  Sex: Male

DRUGS (2)
  1. TOVIAZ [Suspect]
     Indication: NOCTURIA
     Dosage: 4 MG, UNK
  2. FURIX [Concomitant]
     Dosage: 20 MG, AS NEEDED
     Dates: start: 20121128

REACTIONS (2)
  - Urinary retention [Recovered/Resolved]
  - Pain [Recovered/Resolved]
